FAERS Safety Report 10387918 (Version 2)
Quarter: 2014Q4

REPORT INFORMATION
  Report Type: Spontaneous
  Country: JP (occurrence: JP)
  Receive Date: 20140815
  Receipt Date: 20141111
  Transmission Date: 20150528
  Serious: Yes (Death, Hospitalization, Other)
  Sender: FDA-Public Use
  Company Number: PHHY2013JP160536

PATIENT
  Age: 53 Year
  Sex: Male
  Weight: 36 kg

DRUGS (5)
  1. SUNITINIB [Suspect]
     Active Substance: SUNITINIB
     Indication: GASTROINTESTINAL STROMAL TUMOUR
     Dosage: UNK
     Route: 065
     Dates: start: 20091201, end: 20100517
  2. SUNITINIB [Suspect]
     Active Substance: SUNITINIB
     Dosage: UNK
     Route: 065
     Dates: start: 20111123
  3. GLIVEC [Suspect]
     Active Substance: IMATINIB MESYLATE
     Indication: GASTROINTESTINAL STROMAL TUMOUR
     Dosage: UNK
     Dates: start: 20030619, end: 20091130
  4. GLIVEC [Suspect]
     Active Substance: IMATINIB MESYLATE
     Route: 065
     Dates: start: 20110927, end: 20111122
  5. SUNITINIB [Suspect]
     Active Substance: SUNITINIB
     Dosage: UNK
     Route: 065
     Dates: start: 20101116, end: 20110926

REACTIONS (13)
  - Malignant neoplasm progression [Fatal]
  - Metastases to peritoneum [Unknown]
  - Gait disturbance [Unknown]
  - Diarrhoea [Recovering/Resolving]
  - Oedema [Recovering/Resolving]
  - Interstitial lung disease [Unknown]
  - Liver disorder [Recovering/Resolving]
  - Nausea [Recovering/Resolving]
  - Extradural neoplasm [Unknown]
  - Monoplegia [Unknown]
  - General physical health deterioration [Unknown]
  - Spinal cord compression [Unknown]
  - Gastrointestinal stromal tumour [Fatal]

NARRATIVE: CASE EVENT DATE: 20030622
